FAERS Safety Report 15628659 (Version 1)
Quarter: 2018Q4

REPORT INFORMATION
  Report Type: Spontaneous
  Country: FR (occurrence: FR)
  Receive Date: 20181116
  Receipt Date: 20181116
  Transmission Date: 20190205
  Serious: Yes (Hospitalization, Other)
  Sender: FDA-Public Use
  Company Number: FR-009507513-1811FRA006793

PATIENT
  Age: 57 Year
  Sex: Female

DRUGS (2)
  1. ZERBAXA [Suspect]
     Active Substance: CEFTOLOZANE SULFATE\TAZOBACTAM SODIUM
     Dosage: 0.75, DOSAGE FORM, QD
     Route: 042
     Dates: start: 20161228, end: 20170101
  2. ZERBAXA [Suspect]
     Active Substance: CEFTOLOZANE SULFATE\TAZOBACTAM SODIUM
     Indication: LIVER ABSCESS
     Dosage: 3 DOSAGE FORM, QD
     Route: 042
     Dates: start: 20161221, end: 20161227

REACTIONS (2)
  - Depressed level of consciousness [Recovered/Resolved]
  - Clonus [Recovered/Resolved]

NARRATIVE: CASE EVENT DATE: 201612
